FAERS Safety Report 5608985-2 (Version None)
Quarter: 2008Q1

REPORT INFORMATION
  Report Type: 
  Country: None (occurrence: None)
  Receive Date: 20080131
  Receipt Date: 20080118
  Transmission Date: 20080703
  Serious: Yes (Hospitalization, Other)
  Sender: FDA-Public Use
  Company Number: SE-JNJFOC-20080107475

PATIENT
  Age: 62 Year
  Sex: Female

DRUGS (15)
  1. REMICADE [Suspect]
     Indication: RHEUMATOID ARTHRITIS
     Route: 042
  2. LEPHETON [Concomitant]
     Route: 048
  3. KALCIPOS D [Concomitant]
     Route: 048
  4. RHINOCORT [Concomitant]
     Route: 045
  5. METHOTREXATE [Concomitant]
     Indication: DRUG USE FOR UNKNOWN INDICATION
     Route: 048
  6. LAKTULOS [Concomitant]
     Route: 048
  7. FOLACIN [Concomitant]
     Indication: DRUG USE FOR UNKNOWN INDICATION
  8. TAVEGYL [Concomitant]
     Indication: DRUG USE FOR UNKNOWN INDICATION
  9. LUNELAX [Concomitant]
  10. RINEXIN [Concomitant]
     Indication: DRUG USE FOR UNKNOWN INDICATION
     Route: 048
  11. MUCOMYST [Concomitant]
     Indication: DRUG USE FOR UNKNOWN INDICATION
     Route: 048
  12. FLUNITRAZEPAM [Concomitant]
     Indication: DRUG USE FOR UNKNOWN INDICATION
  13. ALVEDON FORTE [Concomitant]
     Indication: DRUG USE FOR UNKNOWN INDICATION
  14. CARVEDILOL [Concomitant]
     Indication: DRUG USE FOR UNKNOWN INDICATION
     Route: 048
  15. VENTOLIN [Concomitant]
     Indication: DRUG USE FOR UNKNOWN INDICATION

REACTIONS (1)
  - MALIGNANT RESPIRATORY TRACT NEOPLASM [None]
